FAERS Safety Report 6310875-7 (Version None)
Quarter: 2009Q3

REPORT INFORMATION
  Report Type: 
  Country: None (occurrence: None)
  Receive Date: 20090812
  Receipt Date: 20090803
  Transmission Date: 20100115
  Serious: Yes (Death, Other)
  Sender: FDA-Public Use
  Company Number: GXKR2009CN08832

PATIENT
  Age: 58 Year
  Sex: Female

DRUGS (4)
  1. PREDNISONE [Suspect]
     Indication: SJOGREN'S SYNDROME
  2. CYCLOSPORINE [Suspect]
     Indication: SJOGREN'S SYNDROME
  3. RITUXIMAB (RITUXIMAB) [Suspect]
     Indication: SJOGREN'S SYNDROME
     Dosage: 375 MG/M2, QW, 3-4 CONSECUTIVE WEEKS, INFUSION
  4. RITUXIMAB (RITUXIMAB) [Suspect]
     Indication: THROMBOCYTOPENIA
     Dosage: 375 MG/M2, QW, 3-4 CONSECUTIVE WEEKS, INFUSION

REACTIONS (5)
  - BRONCHOPULMONARY ASPERGILLOSIS [None]
  - HERPES ZOSTER [None]
  - OSTEONECROSIS [None]
  - PNEUMONIA STAPHYLOCOCCAL [None]
  - TREATMENT FAILURE [None]
